FAERS Safety Report 6388789-6 (Version None)
Quarter: 2009Q4

REPORT INFORMATION
  Report Type: 
  Country: None (occurrence: None)
  Receive Date: 20091005
  Receipt Date: 20091002
  Transmission Date: 20100525
  Serious: Yes (Life-Threatening, Hospitalization, Other)
  Sender: FDA-Public Use
  Company Number: JP-B.I. PHARMACEUTICALS,INC./RIDGEFIELD-2009-BP-08474NB

PATIENT
  Sex: Male
  Weight: 40 kg

DRUGS (5)
  1. PRAMIPEXOLE DIHYDROCHLORIDE [Suspect]
     Indication: PARKINSON'S DISEASE
     Dosage: 0.25 MG
     Route: 048
     Dates: start: 20050408, end: 20090628
  2. MADOPAR [Concomitant]
     Indication: PARKINSON'S DISEASE
     Dosage: 100 MG
     Route: 048
     Dates: start: 20070109
  3. TAKEPRON [Concomitant]
     Indication: ABDOMINAL DISCOMFORT
     Dosage: 15 MG
     Route: 048
     Dates: start: 20070807
  4. DOPS [Concomitant]
     Indication: ORTHOSTATIC HYPOTENSION
     Dosage: 100 MG
     Route: 048
     Dates: start: 20090507, end: 20090619
  5. SYMMETREL [Concomitant]
     Indication: PARKINSON'S DISEASE
     Dosage: 50 MG
     Route: 048
     Dates: start: 20090522, end: 20090731

REACTIONS (5)
  - INAPPROPRIATE ANTIDIURETIC HORMONE SECRETION [None]
  - OEDEMA PERIPHERAL [None]
  - PLEURAL EFFUSION [None]
  - SCROTAL OEDEMA [None]
  - SPINAL COMPRESSION FRACTURE [None]
